FAERS Safety Report 23776808 (Version 1)
Quarter: 2024Q2

REPORT INFORMATION
  Report Type: Report from Study
  Country: US (occurrence: US)
  Receive Date: 20240424
  Receipt Date: 20240424
  Transmission Date: 20240715
  Serious: Yes (Other)
  Sender: FDA-Public Use
  Company Number: US-ABBVIE-5729650

PATIENT
  Sex: Female

DRUGS (2)
  1. HUMIRA [Suspect]
     Active Substance: ADALIMUMAB
     Indication: Product used for unknown indication
     Route: 058
  2. ENBREL [Suspect]
     Active Substance: ETANERCEPT
     Indication: Product used for unknown indication
     Route: 065

REACTIONS (7)
  - Brain abscess [Unknown]
  - General symptom [Recovered/Resolved]
  - Therapeutic product effect incomplete [Unknown]
  - Brain compression [Unknown]
  - Drug ineffective [Unknown]
  - Tooth infection [Unknown]
  - Sinusitis [Unknown]
